FAERS Safety Report 7606832-0 (Version None)
Quarter: 2011Q3

REPORT INFORMATION
  Report Type: 
  Country: None (occurrence: None)
  Receive Date: 20110713
  Receipt Date: 20110616
  Transmission Date: 20111222
  Serious: Yes (Hospitalization, Congenital Anomaly)
  Sender: FDA-Public Use
  Company Number: US-GLAXOSMITHKLINE-A0923799A

PATIENT
  Sex: Female
  Weight: 4.2 kg

DRUGS (1)
  1. PAXIL [Suspect]
     Indication: PRODUCT USED FOR UNKNOWN INDICATION
     Route: 048

REACTIONS (7)
  - PULMONARY VALVE STENOSIS CONGENITAL [None]
  - SKULL MALFORMATION [None]
  - CEREBELLAR SYNDROME [None]
  - NERVOUS SYSTEM DISORDER [None]
  - ATRIAL SEPTAL DEFECT [None]
  - DANDY-WALKER SYNDROME [None]
  - MATERNAL EXPOSURE DURING PREGNANCY [None]
